FAERS Safety Report 11742623 (Version 4)
Quarter: 2018Q1

REPORT INFORMATION
  Report Type: Report from Study
  Country: JP (occurrence: JP)
  Receive Date: 20151116
  Receipt Date: 20180202
  Transmission Date: 20180508
  Serious: Yes (Death, Life-Threatening)
  Sender: FDA-Public Use
  Company Number: JP-PFIZER INC-2015380075

PATIENT
  Age: 64 Year
  Sex: Male
  Weight: 71.8 kg

DRUGS (36)
  1. ALDREB [Concomitant]
     Indication: LIVER ABSCESS
  2. LANSOPRAZOLE. [Concomitant]
     Active Substance: LANSOPRAZOLE
     Dosage: UNK
     Route: 048
     Dates: start: 201508
  3. LANSOPRAZOLE. [Concomitant]
     Active Substance: LANSOPRAZOLE
     Dosage: 30 MG, 1X/DAY
     Route: 048
     Dates: start: 20150924, end: 20151030
  4. ARTIST [Concomitant]
     Active Substance: CARVEDILOL
     Indication: ATRIAL FIBRILLATION
     Dosage: UNK
     Route: 048
     Dates: start: 201508
  5. MUCODYNE [Concomitant]
     Active Substance: CARBOCYSTEINE
     Indication: SECRETION DISCHARGE
     Dosage: UNK
     Route: 048
     Dates: start: 201508
  6. FILGRASTIM [Concomitant]
     Active Substance: FILGRASTIM
     Indication: LIVER ABSCESS
  7. MEROPENEM. [Concomitant]
     Active Substance: MEROPENEM
     Indication: LIVER ABSCESS
  8. FUNGUARD [Concomitant]
     Active Substance: MICAFUNGIN SODIUM
     Indication: ABDOMINAL INFECTION
     Dosage: 150 MG, 1X/DAY
     Route: 041
     Dates: start: 20150801, end: 20151030
  9. TOBRACIN /00304201/ [Concomitant]
     Dosage: UNK
     Dates: start: 20150908
  10. LIVACT /00847901/ [Concomitant]
     Active Substance: ISOLEUCINE\LEUCINE\VALINE
     Dosage: UNK
     Route: 048
     Dates: start: 201508
  11. BFLUID [Concomitant]
     Active Substance: AMINO ACIDS\DEXTROSE\ELECTROLYTES NOS\VITAMINS
     Dosage: UNK
     Dates: start: 201510
  12. BROTIZOLAM [Concomitant]
     Active Substance: BROTIZOLAM
     Dosage: UNK
     Route: 048
     Dates: start: 201508
  13. LIPACREON [Concomitant]
     Active Substance: PANCRELIPASE
     Dosage: UNK
     Route: 048
     Dates: start: 201508
  14. FILGRASTIM [Concomitant]
     Active Substance: FILGRASTIM
     Indication: ABDOMINAL INFECTION
     Dosage: 150 MG, 1X/DAY
     Route: 058
     Dates: start: 20151027, end: 20151029
  15. MEROPENEM. [Concomitant]
     Active Substance: MEROPENEM
     Indication: ABDOMINAL INFECTION
     Dosage: 2 G, 3X/DAY
     Route: 041
     Dates: start: 20150810, end: 20151030
  16. FUNGUARD [Concomitant]
     Active Substance: MICAFUNGIN SODIUM
     Indication: LIVER ABSCESS
  17. ARTIST [Concomitant]
     Active Substance: CARVEDILOL
     Dosage: 10 MG, 2X/DAY
     Route: 048
     Dates: end: 20151030
  18. QUETIAPINE. [Concomitant]
     Active Substance: QUETIAPINE
     Indication: DELIRIUM
     Dosage: 100 MG, 1X/DAY
     Route: 048
     Dates: start: 20150810, end: 20151029
  19. AMBROXOL [Concomitant]
     Active Substance: AMBROXOL
     Indication: SECRETION DISCHARGE
     Dosage: UNK
     Route: 048
     Dates: start: 201508
  20. AMIKACIN [Concomitant]
     Active Substance: AMIKACIN
     Indication: LIVER ABSCESS
  21. TEICOPLANIN [Concomitant]
     Active Substance: TEICOPLANIN
     Indication: LIVER ABSCESS
  22. RESPLEN [Concomitant]
     Active Substance: EPRAZINONE
     Dosage: 20 MG, 3X/DAY
     Route: 048
     Dates: start: 20150908, end: 20151030
  23. ANAEMETRO [Concomitant]
     Active Substance: METRONIDAZOLE
     Dosage: UNK
     Dates: start: 20151027
  24. TWINLINE [Concomitant]
     Active Substance: DIETARY SUPPLEMENT
     Dosage: UNK
     Route: 048
     Dates: start: 201508
  25. TYGACIL [Suspect]
     Active Substance: TIGECYCLINE
     Indication: ABDOMINAL ABSCESS
     Dosage: 100 MG, 1X/DAY
     Dates: start: 20151028, end: 20151028
  26. DAI-KENCHU-TO [Concomitant]
     Active Substance: MALTOSE
     Indication: LIVER ABSCESS
  27. MUCODYNE [Concomitant]
     Active Substance: CARBOCYSTEINE
     Dosage: 10 ML, 3X/DAY
     Route: 048
     Dates: start: 20150908, end: 20151030
  28. AMBROXOL [Concomitant]
     Active Substance: AMBROXOL
     Dosage: 15 MG, 3X/DAY
     Route: 048
     Dates: start: 20150908, end: 20151030
  29. TYGACIL [Suspect]
     Active Substance: TIGECYCLINE
     Dosage: 50 MG, 3X/DAY (AT 01:50, AT 09:06 AND AT 19:59)
     Route: 042
     Dates: start: 20151030, end: 20151030
  30. AMIKACIN [Concomitant]
     Active Substance: AMIKACIN
     Indication: ABDOMINAL INFECTION
     Dosage: 600 MG, 1X/DAY
     Route: 042
     Dates: start: 20151027, end: 20151030
  31. ALDREB [Concomitant]
     Indication: ABDOMINAL INFECTION
     Dosage: 1200 MG, 2X/DAY
     Route: 041
     Dates: start: 20151027, end: 20151030
  32. DAI-KENCHU-TO [Concomitant]
     Active Substance: MALTOSE
     Indication: ABDOMINAL INFECTION
     Dosage: 2 DF, 3X/DAY (2 PACKS)
     Route: 048
     Dates: start: 20150807, end: 20151030
  33. RESPLEN [Concomitant]
     Active Substance: EPRAZINONE
     Indication: SECRETION DISCHARGE
     Dosage: UNK
     Route: 048
     Dates: start: 201508
  34. TYGACIL [Suspect]
     Active Substance: TIGECYCLINE
     Indication: LIVER ABSCESS
     Dosage: 50 MG, DAILY
     Route: 042
     Dates: start: 20151029, end: 20151029
  35. TEICOPLANIN [Concomitant]
     Active Substance: TEICOPLANIN
     Indication: ABDOMINAL INFECTION
     Dosage: 400 MG, 1X/DAY
     Route: 041
     Dates: start: 20150811, end: 20151030
  36. NOR-ADRENALIN /00127502/ [Concomitant]
     Dosage: UNK
     Dates: start: 20151027

REACTIONS (3)
  - Condition aggravated [Not Recovered/Not Resolved]
  - Renal impairment [Not Recovered/Not Resolved]
  - Pancreatic carcinoma [Fatal]

NARRATIVE: CASE EVENT DATE: 20151030
